FAERS Safety Report 5239525-8 (Version None)
Quarter: 2007Q1

REPORT INFORMATION
  Report Type: 
  Country: None (occurrence: None)
  Receive Date: 20070216
  Receipt Date: 20070131
  Transmission Date: 20070707
  Serious: Yes (Hospitalization)
  Sender: FDA-Public Use
  Company Number: 2007CG00192

PATIENT
  Age: 39 Year
  Sex: Female

DRUGS (2)
  1. XYLOCAINE [Suspect]
     Route: 058
     Dates: start: 20070111, end: 20070111
  2. KENACORT [Suspect]
     Route: 058
     Dates: start: 20070111, end: 20070111

REACTIONS (3)
  - CHILLS [None]
  - MALAISE [None]
  - RASH ERYTHEMATOUS [None]
